FAERS Safety Report 22127770 (Version 1)
Quarter: 2023Q1

REPORT INFORMATION
  Report Type: Spontaneous
  Country: None (occurrence: US)
  Receive Date: 20230323
  Receipt Date: 20230323
  Transmission Date: 20230418
  Serious: Yes (Hospitalization)
  Sender: FDA-Public Use
  Company Number: US-Oxford Pharmaceuticals, LLC-2139398

PATIENT
  Sex: Female

DRUGS (7)
  1. METHOCARBAMOL [Suspect]
     Active Substance: METHOCARBAMOL
     Indication: Product used for unknown indication
     Route: 065
  2. LUPRON DEPOT [Concomitant]
     Active Substance: LEUPROLIDE ACETATE
  3. XGEVA [Concomitant]
     Active Substance: DENOSUMAB
  4. LETROZOLE [Concomitant]
     Active Substance: LETROZOLE
  5. LISINOPRIL [Concomitant]
     Active Substance: LISINOPRIL
  6. GABAPENTIN [Concomitant]
     Active Substance: GABAPENTIN
  7. OXYCODONE AND ACETAMINOPHEN [Concomitant]
     Active Substance: ACETAMINOPHEN\OXYCODONE HYDROCHLORIDE

REACTIONS (2)
  - Anxiety [Unknown]
  - Hypertension [Unknown]
